FAERS Safety Report 5039113-2 (Version None)
Quarter: 2006Q2

REPORT INFORMATION
  Report Type: 
  Country: None (occurrence: None)
  Receive Date: 20060626
  Receipt Date: 20060616
  Transmission Date: 20061013
  Serious: Yes (Other)
  Sender: FDA-Public Use
  Company Number: 224894

PATIENT
  Age: 9 Year
  Sex: Female
  Weight: 28.1 kg

DRUGS (19)
  1. NUTROPIN AQ [Suspect]
     Indication: HYPOPITUITARISM
     Dosage: 1.1 ML, QD, SUBCUTANEOUS
     Route: 058
     Dates: start: 19970701
  2. KLONOPIN [Concomitant]
  3. ZONEGRAN [Concomitant]
  4. LAMICTAL [Concomitant]
  5. YNTHROID (LEVOTHYROXINE SODIUM) [Concomitant]
  6. DDAVP (DESMOPRESSIN ACETATE) [Concomitant]
  7. LUPRON [Concomitant]
  8. ULTRACET (ACETAMINOPHEN, TRAMADOL HYDROCHLORIDE) [Concomitant]
  9. ZANTAC [Concomitant]
  10. CHILDREN'S MULTIVITAMINS (MULTIVITAMINS NOS) [Concomitant]
  11. CALCIUM WITH MINERALS (CALCIUM NOS, MINERALS NOS) [Concomitant]
  12. PROMOD (AMINO ACIDS) [Concomitant]
  13. IRON (IRON NOS) [Concomitant]
  14. SALT (SODIUM CHLORIDE) [Concomitant]
  15. MIRALAX [Concomitant]
  16. PEDIASURE (ENTERAL ALIMENTATION) [Concomitant]
  17. ALBUTEROL (ALBUTEROL/ALBUTEROL SULFATE) [Concomitant]
  18. BACTRIM [Concomitant]
  19. ANTICONVULSANTS (ANTICONVULSANTS) [Concomitant]

REACTIONS (1)
  - CONVULSION [None]
